FAERS Safety Report 10687747 (Version 1)
Quarter: 2015Q1

REPORT INFORMATION
  Report Type: Spontaneous
  Country: ID (occurrence: ID)
  Receive Date: 20150102
  Receipt Date: 20150102
  Transmission Date: 20150720
  Serious: Yes (Hospitalization)
  Sender: FDA-Public Use
  Company Number: ID-GE HEALTHCARE MEDICAL DIAGNOSTICS-OMPQ-PR-1412S-1627

PATIENT
  Age: 43 Year
  Sex: Male

DRUGS (3)
  1. OMNIPAQUE [Suspect]
     Active Substance: IOHEXOL
     Indication: DIAGNOSTIC PROCEDURE
  2. STERILE WATER [Concomitant]
     Active Substance: WATER
     Route: 042
     Dates: start: 20141211, end: 20141211
  3. OMNIPAQUE [Suspect]
     Active Substance: IOHEXOL
     Indication: HYDRONEPHROSIS
     Route: 042
     Dates: start: 20141211, end: 20141211

REACTIONS (3)
  - Infusion related reaction [None]
  - Feeling cold [Recovered/Resolved]
  - Chills [Recovered/Resolved]

NARRATIVE: CASE EVENT DATE: 20141211
